FAERS Safety Report 5986870-4 (Version None)
Quarter: 2008Q4

REPORT INFORMATION
  Report Type: 
  Country: None (occurrence: None)
  Receive Date: 20081209
  Receipt Date: 20080410
  Transmission Date: 20090506
  Serious: No
  Sender: FDA-Public Use
  Company Number: US-AMGEN-KDL273494

PATIENT
  Sex: Male
  Weight: 91.7 kg

DRUGS (3)
  1. ENBREL [Suspect]
     Indication: RHEUMATOID ARTHRITIS
     Dates: start: 20080301
  2. ENBREL [Suspect]
     Indication: POLYARTHRITIS
  3. METHOTREXATE [Concomitant]

REACTIONS (2)
  - NASOPHARYNGITIS [None]
  - VIRAL INFECTION [None]
